FAERS Safety Report 11326022 (Version 1)
Quarter: 2015Q3

REPORT INFORMATION
  Report Type: Spontaneous
  Country: US (occurrence: None)
  Receive Date: 20150729
  Receipt Date: 20150729
  Transmission Date: 20151125
  Serious: Yes (Other)
  Sender: FDA-Public Use
  Company Number: EY-BP-US-2015-151

PATIENT

DRUGS (1)
  1. BUPRENORPHINE HYDROCHLORIDE (UNKNOWN) (BUPRENORPHIDE) [Suspect]
     Active Substance: BUPRENORPHINE HYDROCHLORIDE
     Indication: PRODUCT USED FOR UNKNOWN INDICATION

REACTIONS (2)
  - Drug abuse [None]
  - Drug dependence [None]
